FAERS Safety Report 9274353 (Version 1)
Quarter: 2013Q2

REPORT INFORMATION
  Report Type: Spontaneous
  Country: US (occurrence: US)
  Receive Date: 20130506
  Receipt Date: 20130506
  Transmission Date: 20140414
  Serious: Yes (Hospitalization)
  Sender: FDA-Public Use
  Company Number: US-ELI_LILLY_AND_COMPANY-US201302002604

PATIENT
  Sex: Female

DRUGS (3)
  1. FORTEO [Suspect]
     Indication: OSTEOPOROSIS
     Dosage: 20 UG, QD
     Dates: start: 20130128
  2. FORTEO [Suspect]
     Dosage: 20 UG, QD
     Dates: start: 20130128
  3. CALCIUM [Concomitant]

REACTIONS (5)
  - Spinal column stenosis [Unknown]
  - Sinusitis [Unknown]
  - Headache [Recovering/Resolving]
  - Nausea [Recovering/Resolving]
  - Blood calcium increased [Unknown]
